FAERS Safety Report 18335496 (Version 2)
Quarter: 2020Q4

REPORT INFORMATION
  Report Type: Report from Study
  Country: US (occurrence: US)
  Receive Date: 20201001
  Receipt Date: 20201102
  Transmission Date: 20210113
  Serious: Yes (Hospitalization)
  Sender: FDA-Public Use
  Company Number: US-VERTEX PHARMACEUTICALS-2020-019328

PATIENT
  Age: 16 Year
  Sex: Female

DRUGS (16)
  1. BACTRIM [Concomitant]
     Active Substance: SULFAMETHOXAZOLE\TRIMETHOPRIM
  2. HYPERSAL [Concomitant]
     Active Substance: SODIUM CHLORIDE
  3. ERGOCALCIFEROL. [Concomitant]
     Active Substance: ERGOCALCIFEROL
  4. CYPROHEPTADINE. [Concomitant]
     Active Substance: CYPROHEPTADINE
  5. TRIKAFTA [Suspect]
     Active Substance: ELEXACAFTOR\IVACAFTOR\TEZACAFTOR
     Indication: CYSTIC FIBROSIS
     Dosage: 2 TABS (100 MG ELEXACAFTOR/ 50 MG TEZACAFTOR/ 75 MG IVACAFTOR) AM AND 1 TAB (150MG IVACAFTOR) PM
     Route: 048
     Dates: start: 20191220
  6. OMEPRAZOLE. [Concomitant]
     Active Substance: OMEPRAZOLE
  7. URSODIOL. [Concomitant]
     Active Substance: URSODIOL
  8. PULMOZYME [Concomitant]
     Active Substance: DORNASE ALFA
  9. CULTURELLE [Concomitant]
     Active Substance: LACTOBACILLUS RHAMNOSUS
  10. PROAIR HFA [Concomitant]
     Active Substance: ALBUTEROL SULFATE
  11. HYOSCYAMINE. [Concomitant]
     Active Substance: HYOSCYAMINE
  12. BETHKIS [Concomitant]
     Active Substance: TOBRAMYCIN
  13. POLYETHYLENE GLYCOL [MACROGOL] [Concomitant]
     Active Substance: POLYETHYLENE GLYCOLS
  14. ALDACTONE [Concomitant]
     Active Substance: SPIRONOLACTONE
  15. MELATONIN [Concomitant]
     Active Substance: MELATONIN
  16. ZENPEP [Concomitant]
     Active Substance: PANCRELIPASE AMYLASE\PANCRELIPASE LIPASE\PANCRELIPASE PROTEASE

REACTIONS (2)
  - Dyspnoea [Unknown]
  - Cough [Unknown]

NARRATIVE: CASE EVENT DATE: 202009
